FAERS Safety Report 19289412 (Version 2)
Quarter: 2021Q3

REPORT INFORMATION
  Report Type: Spontaneous
  Country: US (occurrence: US)
  Receive Date: 20210521
  Receipt Date: 20210810
  Transmission Date: 20211014
  Serious: Yes (Other)
  Sender: FDA-Public Use
  Company Number: US-PFIZER INC-2020399605

PATIENT
  Age: 70 Year
  Sex: Female

DRUGS (1)
  1. LYRICA [Suspect]
     Active Substance: PREGABALIN
     Indication: SPINAL OSTEOARTHRITIS
     Dosage: 150 MG, 2X/DAY [TAKE ONE CAPSULE (150 MG TOTAL) BY MOUTH 2 (TWO) TIMES DAILY]
     Route: 048
     Dates: start: 20201110

REACTIONS (3)
  - Drug dependence [Unknown]
  - Withdrawal syndrome [Unknown]
  - Limb discomfort [Unknown]
